FAERS Safety Report 16538395 (Version 1)
Quarter: 2019Q3

REPORT INFORMATION
  Report Type: Spontaneous
  Country: US (occurrence: US)
  Receive Date: 20190708
  Receipt Date: 20190708
  Transmission Date: 20191004
  Serious: Yes (Other)
  Sender: FDA-Public Use
  Company Number: US-CIPLA LTD.-2019US04861

PATIENT

DRUGS (6)
  1. NORCO [Concomitant]
     Active Substance: ACETAMINOPHEN\HYDROCODONE BITARTRATE
     Indication: PAIN
     Dosage: UNK, 325 MG, TAKES 0.5 TO 1 TABLET EVERY HOURS AS NEEDED
     Route: 065
     Dates: start: 201808
  2. GABAPENTIN. [Suspect]
     Active Substance: GABAPENTIN
     Indication: NEURALGIA
     Dosage: 2 DOSAGE FORM, TID
     Route: 065
     Dates: start: 201808
  3. GABAPENTIN. [Suspect]
     Active Substance: GABAPENTIN
     Dosage: 4 DOSAGE FORM, QID
     Route: 065
  4. BACLOFEN. [Concomitant]
     Active Substance: BACLOFEN
     Indication: MUSCLE SPASMS
     Dosage: 30 MG + 25 MG, 30 MG IN THE MORNING, 20 MG IN THE MID DAY, AND 30 MG AT NIGHT
     Route: 065
     Dates: start: 201811
  5. FLEXERIL [Concomitant]
     Active Substance: CYCLOBENZAPRINE HYDROCHLORIDE
     Indication: MUSCLE SPASMS
     Dosage: 10 MILLIGRAM, TID
     Route: 065
     Dates: start: 201809, end: 201811
  6. GABAPENTIN. [Suspect]
     Active Substance: GABAPENTIN
     Dosage: 3 DOSAGE FORM, TID
     Route: 065

REACTIONS (3)
  - Drug ineffective for unapproved indication [Unknown]
  - Off label use [Unknown]
  - Condition aggravated [Not Recovered/Not Resolved]

NARRATIVE: CASE EVENT DATE: 201811
